FAERS Safety Report 17468717 (Version 2)
Quarter: 2020Q1

REPORT INFORMATION
  Report Type: Spontaneous
  Country: US (occurrence: US)
  Receive Date: 20200227
  Receipt Date: 20200228
  Transmission Date: 20200409
  Serious: Yes (Other)
  Sender: FDA-Public Use
  Company Number: US-PFIZER INC-2020084285

PATIENT
  Age: 63 Year
  Sex: Female
  Weight: 97.52 kg

DRUGS (3)
  1. GEODON [Suspect]
     Active Substance: ZIPRASIDONE HYDROCHLORIDE\ZIPRASIDONE MESYLATE
     Dosage: 3 DF, DAILY (1 CAPSULE IN THE MORNING AND 2 AT NIGHT FOR A TOTAL OF 360)
  2. GEODON [Suspect]
     Active Substance: ZIPRASIDONE HYDROCHLORIDE\ZIPRASIDONE MESYLATE
     Dosage: 280 MG, 2X/DAY
  3. GEODON [Suspect]
     Active Substance: ZIPRASIDONE HYDROCHLORIDE\ZIPRASIDONE MESYLATE
     Dosage: 180 MG, DAILY

REACTIONS (9)
  - Anger [Unknown]
  - Weight increased [Unknown]
  - Wrong technique in product usage process [Unknown]
  - Drug ineffective [Unknown]
  - Agitation [Unknown]
  - Diabetes mellitus [Unknown]
  - Somnolence [Unknown]
  - Insomnia [Unknown]
  - Overdose [Unknown]
